FAERS Safety Report 12988236 (Version 1)
Quarter: 2016Q4

REPORT INFORMATION
  Report Type: Other
  Country: US (occurrence: US)
  Receive Date: 20161130
  Receipt Date: 20161130
  Transmission Date: 20170207
  Serious: Yes (Other)
  Sender: FDA-Public Use
  Company Number: US-COL_25117_2016

PATIENT
  Age: 36 Year
  Sex: Male

DRUGS (2)
  1. COLGATE TOTAL LASTING WHITE POLAR FRESHMINT [Suspect]
     Active Substance: SODIUM FLUORIDE
     Dosage: DOUBLE FINGERNAIL LENGTH/ONCE/
     Route: 048
     Dates: start: 20161110, end: 20161110
  2. COLGATE TOTAL LASTING WHITE POLAR FRESHMINT [Suspect]
     Active Substance: SODIUM FLUORIDE
     Indication: PRODUCT USED FOR UNKNOWN INDICATION
     Dosage: FINGERNAIL LENGTH (PINKY) FROM BOTTOM OF THE CAP/ONCE/
     Route: 048
     Dates: start: 20161030, end: 20161030

REACTIONS (6)
  - Swollen tongue [Unknown]
  - Paraesthesia oral [Not Recovered/Not Resolved]
  - Lip swelling [Unknown]
  - Mouth swelling [Unknown]
  - Hypersensitivity [Unknown]
  - Dyspnoea [Unknown]

NARRATIVE: CASE EVENT DATE: 20161111
